FAERS Safety Report 18991899 (Version 3)
Quarter: 2021Q2

REPORT INFORMATION
  Report Type: Spontaneous
  Country: US (occurrence: US)
  Receive Date: 20210310
  Receipt Date: 20210420
  Transmission Date: 20210717
  Serious: Yes (Other)
  Sender: FDA-Public Use
  Company Number: US-PFIZER INC-2021241002

PATIENT
  Age: 49 Year
  Sex: Female
  Weight: 51.26 kg

DRUGS (3)
  1. PREMPRO [Suspect]
     Active Substance: ESTROGENS, CONJUGATED\MEDROXYPROGESTERONE ACETATE
     Indication: BONE LOSS
     Dosage: UNK, 1X/DAY
     Route: 048
     Dates: start: 20210215, end: 20210226
  2. PREMPRO [Suspect]
     Active Substance: ESTROGENS, CONJUGATED\MEDROXYPROGESTERONE ACETATE
     Indication: BONE DENSITY DECREASED
  3. SYNTHROID [Concomitant]
     Active Substance: LEVOTHYROXINE SODIUM
     Indication: THYROID DISORDER
     Dosage: 0.088 MG, 1X/DAY
     Route: 048
     Dates: start: 2018

REACTIONS (8)
  - Suicidal ideation [Recovered/Resolved]
  - Aggression [Recovered/Resolved]
  - Anger [Recovered/Resolved]
  - Disease recurrence [Recovered/Resolved]
  - Crying [Recovered/Resolved]
  - Condition aggravated [Recovered/Resolved]
  - Depressed mood [Recovered/Resolved]
  - Feeling abnormal [Unknown]

NARRATIVE: CASE EVENT DATE: 2021
